FAERS Safety Report 18747953 (Version 3)
Quarter: 2021Q4

REPORT INFORMATION
  Report Type: Spontaneous
  Country: GB (occurrence: GB)
  Receive Date: 20210115
  Receipt Date: 20211012
  Transmission Date: 20220303
  Serious: Yes (Disabling)
  Sender: FDA-Public Use
  Company Number: None

PATIENT
  Age: 22 Year
  Sex: Female

DRUGS (4)
  1. CIPROFLOXACIN [Suspect]
     Active Substance: CIPROFLOXACIN
     Indication: Pelvic inflammatory disease
     Dosage: UNK
     Route: 048
     Dates: start: 20201206, end: 20201206
  2. METRONIDAZOLE [Suspect]
     Active Substance: METRONIDAZOLE
     Indication: Pelvic inflammatory disease
     Dosage: UNK(500G X 2)
     Route: 048
     Dates: start: 20201206, end: 20201206
  3. MACROBID [Concomitant]
     Active Substance: NITROFURANTOIN\NITROFURANTOIN MONOHYDRATE
     Indication: Ill-defined disorder
     Dosage: UNK
  4. FOSFOMYCIN TROMETHAMINE [Concomitant]
     Active Substance: FOSFOMYCIN TROMETHAMINE
     Indication: Ill-defined disorder
     Dosage: UNK

REACTIONS (8)
  - Amnesia [Recovering/Resolving]
  - Heart rate increased [Not Recovered/Not Resolved]
  - Vision blurred [Recovering/Resolving]
  - Muscular weakness [Not Recovered/Not Resolved]
  - Abdominal pain upper [Recovered/Resolved with Sequelae]
  - Anxiety [Not Recovered/Not Resolved]
  - Migraine [Not Recovered/Not Resolved]
  - Medication error [Unknown]

NARRATIVE: CASE EVENT DATE: 20201206
